FAERS Safety Report 18269740 (Version 1)
Quarter: 2020Q3

REPORT INFORMATION
  Report Type: Spontaneous
  Country: US (occurrence: US)
  Receive Date: 20200915
  Receipt Date: 20200915
  Transmission Date: 20201103
  Serious: No
  Sender: FDA-Public Use
  Company Number: US-THERATECHNOLOGIES INC.-2020-THE-TES-000039

PATIENT
  Sex: Male

DRUGS (2)
  1. EGRIFTA [Suspect]
     Active Substance: TESAMORELIN ACETATE
     Indication: PRODUCT USED FOR UNKNOWN INDICATION
     Dosage: UNK
     Route: 058
     Dates: end: 20200618
  2. EGRIFTA SV [Suspect]
     Active Substance: TESAMORELIN ACETATE
     Indication: ASYMPTOMATIC HIV INFECTION
     Dosage: 2 MG, QD
     Route: 058
     Dates: start: 202005, end: 202008

REACTIONS (4)
  - Injection site swelling [Recovered/Resolved]
  - Injection site irritation [Recovered/Resolved]
  - Peripheral swelling [Unknown]
  - Abdominal pain upper [Unknown]
